FAERS Safety Report 13314751 (Version 2)
Quarter: 2017Q2

REPORT INFORMATION
  Report Type: Report from Study
  Country: US (occurrence: US)
  Receive Date: 20170309
  Receipt Date: 20170411
  Transmission Date: 20170830
  Serious: Yes (Death, Hospitalization)
  Sender: FDA-Public Use
  Company Number: US-IPSEN-CABO-17008475

PATIENT
  Age: 57 Year
  Sex: Male

DRUGS (5)
  1. FOLIC ACID. [Concomitant]
     Active Substance: FOLIC ACID
  2. CABOMETYX [Suspect]
     Active Substance: CABOZANTINIB S-MALATE
     Indication: LUNG NEOPLASM MALIGNANT
     Dosage: 60 MG, QD
     Route: 048
     Dates: start: 20170105, end: 20170216
  3. TYLENOL [Concomitant]
     Active Substance: ACETAMINOPHEN
  4. SEROQUEL [Concomitant]
     Active Substance: QUETIAPINE FUMARATE
  5. LITHIUM. [Concomitant]
     Active Substance: LITHIUM

REACTIONS (2)
  - Embolic stroke [Fatal]
  - Off label use [Unknown]

NARRATIVE: CASE EVENT DATE: 20170216
